FAERS Safety Report 15936811 (Version 3)
Quarter: 2019Q2

REPORT INFORMATION
  Report Type: Spontaneous
  Country: US (occurrence: US)
  Receive Date: 20190208
  Receipt Date: 20190418
  Transmission Date: 20190711
  Serious: Yes (Hospitalization)
  Sender: FDA-Public Use
  Company Number: US-BIOGEN-2019BI00693264

PATIENT
  Age: 45 Year
  Sex: Female

DRUGS (1)
  1. TYSABRI [Suspect]
     Active Substance: NATALIZUMAB
     Indication: MULTIPLE SCLEROSIS
     Route: 050
     Dates: start: 20180827

REACTIONS (2)
  - Mobility decreased [Unknown]
  - Ankle fracture [Not Recovered/Not Resolved]

NARRATIVE: CASE EVENT DATE: 201901
